FAERS Safety Report 23363899 (Version 3)
Quarter: 2024Q2

REPORT INFORMATION
  Report Type: Spontaneous
  Country: US (occurrence: US)
  Receive Date: 20240104
  Receipt Date: 20240404
  Transmission Date: 20240716
  Serious: No
  Sender: FDA-Public Use
  Company Number: US-AMGEN-USASP2024000286

PATIENT
  Age: 65 Year
  Sex: Male

DRUGS (1)
  1. TAVNEOS [Suspect]
     Active Substance: AVACOPAN
     Indication: Microscopic polyangiitis
     Dosage: 30 MILLIGRAM, BID
     Route: 048
     Dates: end: 20240306

REACTIONS (3)
  - Abdominal distension [Unknown]
  - Affective disorder [Recovering/Resolving]
  - Fatigue [Recovering/Resolving]
